FAERS Safety Report 6916149-5 (Version None)
Quarter: 2010Q3

REPORT INFORMATION
  Report Type: 
  Country: None (occurrence: None)
  Receive Date: 20100810
  Receipt Date: 20100802
  Transmission Date: 20110219
  Serious: No
  Sender: FDA-Public Use
  Company Number: US-BIOGENIDEC-2010BI026764

PATIENT
  Age: 47 Year
  Sex: Female

DRUGS (1)
  1. TYSABRI [Suspect]
     Indication: MULTIPLE SCLEROSIS
     Route: 042
     Dates: start: 20100215

REACTIONS (5)
  - BACK PAIN [None]
  - COUGH [None]
  - HYPERSENSITIVITY [None]
  - INCREASED UPPER AIRWAY SECRETION [None]
  - NASOPHARYNGITIS [None]
